FAERS Safety Report 12092549 (Version 3)
Quarter: 2018Q2

REPORT INFORMATION
  Report Type: Report from Study
  Country: JP (occurrence: JP)
  Receive Date: 20160219
  Receipt Date: 20180625
  Transmission Date: 20180711
  Serious: Yes (Other)
  Sender: FDA-Public Use
  Company Number: JP-ALEXION PHARMACEUTICALS INC.-A201401690

PATIENT
  Age: 76 Year
  Sex: Male
  Weight: 73 kg

DRUGS (11)
  1. SOLIRIS [Suspect]
     Active Substance: ECULIZUMAB
     Indication: PAROXYSMAL NOCTURNAL HAEMOGLOBINURIA
     Dosage: 600 MG, QW
     Route: 042
     Dates: start: 20100906, end: 20100927
  2. SOLIRIS [Suspect]
     Active Substance: ECULIZUMAB
     Dosage: 900 MG, Q2W
     Route: 042
     Dates: start: 20101006
  3. PRIMOBOLAN                         /00044802/ [Concomitant]
     Indication: PRODUCT USED FOR UNKNOWN INDICATION
     Dosage: 15 MG, QD
     Route: 048
     Dates: start: 20130721, end: 20130810
  4. SOLIRIS [Suspect]
     Active Substance: ECULIZUMAB
     Dosage: 900 MG, Q2W
     Route: 042
  5. NESP [Concomitant]
     Active Substance: DARBEPOETIN ALFA
     Indication: PRODUCT USED FOR UNKNOWN INDICATION
     Dosage: 30 ?G, QD
     Route: 042
     Dates: start: 20120613, end: 20150122
  6. FEBURIC [Concomitant]
     Active Substance: FEBUXOSTAT
     Indication: PRODUCT USED FOR UNKNOWN INDICATION
     Dosage: 10 MG, DAILY
     Route: 065
     Dates: start: 20150319
  7. EXJADE [Concomitant]
     Active Substance: DEFERASIROX
     Dosage: UNK
     Route: 048
     Dates: start: 20140220, end: 20140302
  8. NESP [Concomitant]
     Active Substance: DARBEPOETIN ALFA
     Dosage: 180 ?G, QD
     Route: 042
     Dates: start: 20150528
  9. EXJADE [Concomitant]
     Active Substance: DEFERASIROX
     Indication: PRODUCT USED FOR UNKNOWN INDICATION
     Dosage: 600 MG, QW
     Route: 042
     Dates: start: 20100906, end: 20100927
  10. EXJADE [Concomitant]
     Active Substance: DEFERASIROX
     Dosage: 900 MG, Q2W
     Route: 042
     Dates: start: 20101006
  11. EXJADE [Concomitant]
     Active Substance: DEFERASIROX
     Dosage: 500 MG, DAILY
     Route: 048
     Dates: start: 20150529

REACTIONS (5)
  - Extravascular haemolysis [Unknown]
  - Decreased appetite [Recovered/Resolved]
  - Antibody test positive [Not Recovered/Not Resolved]
  - Malaise [Recovered/Resolved]
  - Rash [Recovered/Resolved]

NARRATIVE: CASE EVENT DATE: 20130807
